FAERS Safety Report 4575314-5 (Version None)
Quarter: 2005Q1

REPORT INFORMATION
  Report Type: 
  Country: None (occurrence: None)
  Receive Date: 20050209
  Receipt Date: 20050127
  Transmission Date: 20050727
  Serious: Yes (Other)
  Sender: FDA-Public Use
  Company Number: US-JNJFOC-20041106369

PATIENT
  Sex: Female
  Weight: 89.36 kg

DRUGS (6)
  1. REMICADE [Suspect]
     Route: 042
  2. REMICADE [Suspect]
     Indication: RHEUMATOID ARTHRITIS
     Dosage: FIRST INFUSION
     Route: 042
  3. METHOTREXATE [Suspect]
  4. METHOTREXATE [Suspect]
     Indication: RHEUMATOID ARTHRITIS
  5. ACTINOL [Concomitant]
  6. FOLIC ACID [Concomitant]

REACTIONS (2)
  - LYMPHOMA [None]
  - WEIGHT DECREASED [None]
